FAERS Safety Report 5779644-0 (Version None)
Quarter: 2008Q2

REPORT INFORMATION
  Report Type: 
  Country: None (occurrence: None)
  Receive Date: 20080619
  Receipt Date: 20080611
  Transmission Date: 20081010
  Serious: Yes (Other)
  Sender: FDA-Public Use
  Company Number: IE-ABBOTT-08P-229-0457111-00

PATIENT
  Sex: Female

DRUGS (2)
  1. KLACID [Suspect]
     Indication: SINUSITIS
  2. CARBAMAZEPINE [Suspect]
     Indication: MENTAL DISORDER
     Dosage: DAILY

REACTIONS (1)
  - LOSS OF CONSCIOUSNESS [None]
